FAERS Safety Report 5373007-8 (Version None)
Quarter: 2007Q2

REPORT INFORMATION
  Report Type: 
  Country: None (occurrence: None)
  Receive Date: 20070626
  Receipt Date: 20070619
  Transmission Date: 20071010
  Serious: Yes (Life-Threatening, Other)
  Sender: FDA-Public Use
  Company Number: 2007-160285-NL

PATIENT
  Age: 41 Year
  Sex: Female
  Weight: 74 kg

DRUGS (1)
  1. ZEMURON [Suspect]
     Dosage: 30 MG ONCE INTRAVENOUS (N0S)
     Route: 042
     Dates: start: 20070615, end: 20070615

REACTIONS (3)
  - ANAPHYLACTIC REACTION [None]
  - CARDIAC ARREST [None]
  - CARDIOMYOPATHY [None]
